FAERS Safety Report 10678398 (Version 1)
Quarter: 2014Q4

REPORT INFORMATION
  Report Type: Spontaneous
  Country: US (occurrence: None)
  Receive Date: 20141224
  Receipt Date: 20141224
  Transmission Date: 20150529
  Serious: Yes (Disabling)
  Sender: FDA-Public Use
  Company Number: None

PATIENT
  Age: 66 Year
  Sex: Female
  Weight: 106.14 kg

DRUGS (3)
  1. METRONIDAZOLE 500 MG TEVA [Suspect]
     Active Substance: METRONIDAZOLE
     Indication: FLATULENCE
     Dosage: 1 PILL
     Route: 048
  2. METRONIDAZOLE 500 MG TEVA [Suspect]
     Active Substance: METRONIDAZOLE
     Indication: DIARRHOEA
     Dosage: 1 PILL
     Route: 048
  3. METRONIDAZOLE 500 MG TEVA [Suspect]
     Active Substance: METRONIDAZOLE
     Indication: OBESITY SURGERY
     Dosage: 1 PILL
     Route: 048

REACTIONS (3)
  - Neuropathy peripheral [None]
  - Balance disorder [None]
  - Carpal tunnel syndrome [None]

NARRATIVE: CASE EVENT DATE: 20141223
